FAERS Safety Report 9434314 (Version 2)
Quarter: 2013Q3

REPORT INFORMATION
  Report Type: Spontaneous
  Country: US (occurrence: US)
  Receive Date: 20130801
  Receipt Date: 20130925
  Transmission Date: 20140515
  Serious: Yes (Death, Other)
  Sender: FDA-Public Use
  Company Number: US-CELGENEUS-163-21880-13073530

PATIENT
  Sex: Female
  Weight: 108.5 kg

DRUGS (6)
  1. REVLIMID [Suspect]
     Indication: PLASMA CELL MYELOMA
     Dosage: 25 MILLIGRAM
     Route: 048
     Dates: start: 201109, end: 2012
  2. REVLIMID [Suspect]
     Dosage: 15 MILLIGRAM
     Route: 048
     Dates: start: 201207, end: 20130719
  3. ZOMETA [Concomitant]
     Indication: PRODUCT USED FOR UNKNOWN INDICATION
     Dosage: .1429 MILLIGRAM
     Route: 065
     Dates: start: 20120904
  4. ZOMETA [Concomitant]
     Dosage: .1429 MILLIGRAM
     Route: 065
     Dates: start: 20121002
  5. ZOMETA [Concomitant]
     Dosage: .1429 MILLIGRAM
     Route: 065
     Dates: start: 20130107
  6. ZOMETA [Concomitant]
     Dosage: .1429 MILLIGRAM
     Route: 065
     Dates: start: 20130329

REACTIONS (1)
  - Plasma cell myeloma [Fatal]
